FAERS Safety Report 5568380-1 (Version None)
Quarter: 2007Q4

REPORT INFORMATION
  Report Type: 
  Country: None (occurrence: None)
  Receive Date: 20071217
  Receipt Date: 20071210
  Transmission Date: 20080405
  Serious: Yes (Hospitalization, Disabling, Other)
  Sender: FDA-Public Use
  Company Number: 2002-09-0653

PATIENT
  Age: 42 Year
  Sex: Female
  Weight: 65.7716 kg

DRUGS (28)
  1. PEG-INTRON [Suspect]
     Indication: HEPATITIS C
     Dosage: 96 MCG;QW;SC
     Route: 058
     Dates: start: 20020301, end: 20020614
  2. REBETOL [Suspect]
     Indication: HEPATITIS C
     Dosage: 800 MG;QD;PO
     Route: 048
     Dates: start: 20020301, end: 20020614
  3. NORCO [Concomitant]
  4. FOLIC ACID [Concomitant]
  5. CELEXA [Concomitant]
  6. DALMANE [Concomitant]
  7. ZOLOFT [Concomitant]
  8. NORFLEX [Concomitant]
  9. CEPHALEXIN [Concomitant]
  10. NEURONTIN [Concomitant]
  11. PREDNISONE TAB [Concomitant]
  12. CYCLOBENZAPRINE HCL [Concomitant]
  13. REMERON [Concomitant]
  14. PROMETHAZINE [Concomitant]
  15. FUROSEMIDE [Concomitant]
  16. VIOXX [Concomitant]
  17. AMITRIPTLINE HCL [Concomitant]
  18. SONATA [Concomitant]
  19. ZYPREXA [Concomitant]
  20. EFFEXOR XR [Concomitant]
  21. TRIMOX (SULFAMETHOXAZOLE/TRIMETHOPRIM) [Concomitant]
  22. TRAMADOL HCL [Concomitant]
  23. TRAZODONE HCL [Concomitant]
  24. LYRICA [Concomitant]
  25. FENTANYL [Concomitant]
  26. NORTRIPTYLINE HCL [Concomitant]
  27. ANAPROX [Concomitant]
  28. HYDROCODONE BITARTRATE [Concomitant]

REACTIONS (144)
  - ABSCESS [None]
  - ACTIVITIES OF DAILY LIVING IMPAIRED [None]
  - ALOPECIA [None]
  - AMNESIA [None]
  - ANAEMIA [None]
  - ANTINUCLEAR ANTIBODY POSITIVE [None]
  - APHASIA [None]
  - ARTHRALGIA [None]
  - ARTHRITIS [None]
  - ARTHROPATHY [None]
  - ASTHENIA [None]
  - AUTOIMMUNE DISORDER [None]
  - BALANCE DISORDER [None]
  - BIOPSY MUSCLE ABNORMAL [None]
  - BLOOD CALCIUM DECREASED [None]
  - BLOOD DISORDER [None]
  - BLOOD IMMUNOGLOBULIN G INCREASED [None]
  - BLOOD POTASSIUM DECREASED [None]
  - BONE PAIN [None]
  - BRONCHITIS [None]
  - C-REACTIVE PROTEIN INCREASED [None]
  - CERVICAL POLYP [None]
  - CERVICOBRACHIAL SYNDROME [None]
  - CHEST PAIN [None]
  - COGNITIVE DISORDER [None]
  - CONDITION AGGRAVATED [None]
  - CONFUSIONAL STATE [None]
  - CONNECTIVE TISSUE DISORDER [None]
  - CREATINE PHOSPHOKINASE DECREASED [None]
  - CYST [None]
  - DEAFNESS [None]
  - DEHYDRATION [None]
  - DIPLOPIA [None]
  - DRUG INEFFECTIVE [None]
  - DRUG INTOLERANCE [None]
  - DRY MOUTH [None]
  - DYSGRAPHIA [None]
  - DYSPEPSIA [None]
  - DYSPHAGIA [None]
  - DYSPNOEA [None]
  - DYSSTASIA [None]
  - EAR DISORDER [None]
  - EAR PAIN [None]
  - EPISTAXIS [None]
  - ERYTHEMA [None]
  - EXTENSOR PLANTAR RESPONSE [None]
  - FALL [None]
  - FATIGUE [None]
  - FIBROMYALGIA [None]
  - GAIT DISTURBANCE [None]
  - GRIP STRENGTH DECREASED [None]
  - GUILLAIN-BARRE SYNDROME [None]
  - HAEMANGIOMA [None]
  - HAEMOPTYSIS [None]
  - HEADACHE [None]
  - HEPATITIS C VIRUS [None]
  - HYPOAESTHESIA [None]
  - ILL-DEFINED DISORDER [None]
  - INFECTION [None]
  - INFLAMMATION [None]
  - INFLUENZA LIKE ILLNESS [None]
  - INTERVERTEBRAL DISC DISORDER [None]
  - JOINT CREPITATION [None]
  - JOINT INJURY [None]
  - JOINT RANGE OF MOTION DECREASED [None]
  - JOINT SWELLING [None]
  - LIMB DEFORMITY [None]
  - LYMPHADENOPATHY [None]
  - MALAISE [None]
  - MEMORY IMPAIRMENT [None]
  - MENORRHAGIA [None]
  - MENTAL IMPAIRMENT [None]
  - METRORRHAGIA [None]
  - MIDDLE EAR DISORDER [None]
  - MOBILITY DECREASED [None]
  - MOTOR DYSFUNCTION [None]
  - MOVEMENT DISORDER [None]
  - MUSCLE INJURY [None]
  - MUSCLE SPASMS [None]
  - MUSCLE STRAIN [None]
  - MUSCLE TIGHTNESS [None]
  - MUSCLE TWITCHING [None]
  - MUSCULAR WEAKNESS [None]
  - MUSCULOSKELETAL DISORDER [None]
  - MUSCULOSKELETAL PAIN [None]
  - MUSCULOSKELETAL STIFFNESS [None]
  - MYALGIA [None]
  - MYOSITIS [None]
  - NAUSEA [None]
  - NERVE INJURY [None]
  - NERVOUS SYSTEM DISORDER [None]
  - NEURALGIA [None]
  - NEUROLOGICAL SYMPTOM [None]
  - NEUROPATHY [None]
  - NEUROPSYCHOLOGICAL TEST ABNORMAL [None]
  - NEUTROPHIL COUNT INCREASED [None]
  - NIGHT SWEATS [None]
  - OEDEMA [None]
  - OEDEMA PERIPHERAL [None]
  - OSTEOARTHRITIS [None]
  - OTORRHOEA [None]
  - PAIN [None]
  - PAIN IN EXTREMITY [None]
  - PAIN IN JAW [None]
  - PALPITATIONS [None]
  - PANCYTOPENIA [None]
  - PARAESTHESIA [None]
  - PHARYNGOLARYNGEAL PAIN [None]
  - PHOTOSENSITIVITY REACTION [None]
  - PNEUMONITIS [None]
  - POLYNEUROPATHY [None]
  - POOR PERIPHERAL CIRCULATION [None]
  - PROTEIN TOTAL INCREASED [None]
  - PYREXIA [None]
  - RAYNAUD'S PHENOMENON [None]
  - RED BLOOD CELL SEDIMENTATION RATE INCREASED [None]
  - RHEUMATOID FACTOR INCREASED [None]
  - SCIATICA [None]
  - SENSORY DISTURBANCE [None]
  - SINUS DISORDER [None]
  - SINUSITIS [None]
  - SKIN DISCOLOURATION [None]
  - SLEEP DISORDER [None]
  - SPINAL X-RAY ABNORMAL [None]
  - SPLENOMEGALY [None]
  - STAPHYLOCOCCAL INFECTION [None]
  - SWELLING [None]
  - SWOLLEN TONGUE [None]
  - SYNOVIAL FLUID ANALYSIS ABNORMAL [None]
  - SYSTEMIC LUPUS ERYTHEMATOSUS [None]
  - TEMPOROMANDIBULAR JOINT SYNDROME [None]
  - TENDERNESS [None]
  - TENDON DISORDER [None]
  - TENDON RUPTURE [None]
  - TENDONITIS [None]
  - THIRST [None]
  - THYROID DISORDER [None]
  - VAGINAL DISCHARGE [None]
  - VASCULITIS [None]
  - VIRAL LOAD INCREASED [None]
  - VIRAL PHARYNGITIS [None]
  - VISION BLURRED [None]
  - VISUAL DISTURBANCE [None]
  - WHITE BLOOD CELL COUNT INCREASED [None]
